FAERS Safety Report 4506561-6 (Version None)
Quarter: 2004Q4

REPORT INFORMATION
  Report Type: 
  Country: None (occurrence: None)
  Receive Date: 20041122
  Receipt Date: 20041110
  Transmission Date: 20050328
  Serious: Yes (Other)
  Sender: FDA-Public Use
  Company Number: JP-BRISTOL-MYERS SQUIBB COMPANY-12767497

PATIENT
  Age: 53 Year
  Sex: Female

DRUGS (12)
  1. GATIFLO TABS 100 MG [Suspect]
     Indication: NASOPHARYNGITIS
     Route: 048
     Dates: start: 20041025, end: 20041110
  2. GATIFLO TABS 100 MG [Suspect]
     Indication: PNEUMONIA
     Route: 048
     Dates: start: 20041025, end: 20041110
  3. LOXONIN [Concomitant]
     Indication: NASOPHARYNGITIS
     Route: 048
     Dates: start: 20041025, end: 20041110
  4. LOXONIN [Concomitant]
     Indication: PNEUMONIA
     Route: 048
     Dates: start: 20041025, end: 20041110
  5. MUCODYNE [Concomitant]
     Indication: NASOPHARYNGITIS
     Route: 048
     Dates: start: 20041025, end: 20041110
  6. MUCODYNE [Concomitant]
     Indication: PNEUMONIA
     Route: 048
     Dates: start: 20041025, end: 20041110
  7. BROCIN [Concomitant]
     Indication: NASOPHARYNGITIS
     Route: 048
     Dates: start: 20041025, end: 20041110
  8. BROCIN [Concomitant]
     Indication: PNEUMONIA
     Route: 048
     Dates: start: 20041025, end: 20041110
  9. DIOVAN [Concomitant]
     Route: 048
  10. VASOLAN [Concomitant]
     Route: 048
  11. GANATON [Concomitant]
     Route: 048
  12. ATROVENT [Concomitant]
     Route: 055

REACTIONS (3)
  - HYPOGLYCAEMIA [None]
  - MARKEDLY REDUCED DIETARY INTAKE [None]
  - PNEUMONIA [None]
